FAERS Safety Report 18755616 (Version 5)
Quarter: 2022Q1

REPORT INFORMATION
  Report Type: Other
  Country: CN (occurrence: None)
  Receive Date: 20210119
  Receipt Date: 20220120
  Transmission Date: 20220423
  Serious: Yes (Hospitalization)
  Sender: FDA-Public Use
  Company Number: CN-ROCHE-1627569

PATIENT
  Age: 39 Year
  Sex: Male
  Weight: 68 kg

DRUGS (4)
  1. AVASTIN [Suspect]
     Active Substance: BEVACIZUMAB
     Indication: Colon cancer metastatic
     Route: 041
     Dates: start: 20130302, end: 20190916
  2. AVASTIN [Suspect]
     Active Substance: BEVACIZUMAB
     Route: 041
     Dates: end: 20200916
  3. AVASTIN [Suspect]
     Active Substance: BEVACIZUMAB
     Route: 041
     Dates: start: 202102, end: 20210414
  4. AVASTIN [Suspect]
     Active Substance: BEVACIZUMAB
     Route: 041
     Dates: start: 20130302, end: 20210414

REACTIONS (11)
  - Pain [Unknown]
  - Pyrexia [Unknown]
  - Abdominal discomfort [Unknown]
  - Stress [Unknown]
  - Discomfort [Unknown]
  - Nasopharyngitis [Unknown]
  - Protein urine present [Unknown]
  - Tongue ulceration [Unknown]
  - Mouth ulceration [Unknown]
  - Hypertension [Unknown]
  - Liver function test abnormal [Unknown]

NARRATIVE: CASE EVENT DATE: 20200911
